FAERS Safety Report 25459531 (Version 2)
Quarter: 2025Q3

REPORT INFORMATION
  Report Type: Spontaneous
  Country: US (occurrence: US)
  Receive Date: 20250620
  Receipt Date: 20250709
  Transmission Date: 20251020
  Serious: Yes (Death, Hospitalization)
  Sender: DOMPE FARMACEUTICI
  Company Number: US-FARMAPROD-202506-1965

PATIENT
  Age: 84 Year
  Sex: Female
  Weight: 44.0 kg

DRUGS (9)
  1. OXERVATE [Suspect]
     Active Substance: CENEGERMIN-BKBJ
     Indication: Neurotrophic keratopathy
     Route: 047
     Dates: start: 20250401
  2. DOMPERIDONE [Concomitant]
     Active Substance: DOMPERIDONE
  3. DILTIAZEM [Concomitant]
     Active Substance: DILTIAZEM
  4. DILTIAZEM [Concomitant]
     Active Substance: DILTIAZEM
  5. FLONASE ALLERGY RELIEF [Concomitant]
     Active Substance: FLUTICASONE PROPIONATE
  6. MULTI-VITAMIN DAILY [Concomitant]
  7. PROAIR HFA [Concomitant]
     Active Substance: ALBUTEROL SULFATE
  8. SENNA-S [Concomitant]
     Active Substance: DOCUSATE SODIUM\SENNOSIDES
  9. PROLIA [Concomitant]
     Active Substance: DENOSUMAB

REACTIONS (1)
  - Death [Fatal]

NARRATIVE: CASE EVENT DATE: 20250610
